FAERS Safety Report 22137196 (Version 2)
Quarter: 2023Q4

REPORT INFORMATION
  Report Type: Report from Study
  Country: DE (occurrence: DE)
  Receive Date: 20230324
  Receipt Date: 20231009
  Transmission Date: 20240110
  Serious: Yes (Hospitalization)
  Sender: FDA-Public Use
  Company Number: DE-ABBVIE-4702328

PATIENT
  Age: 72 Year
  Sex: Female

DRUGS (2)
  1. RINVOQ [Suspect]
     Active Substance: UPADACITINIB
     Indication: Rheumatoid arthritis
     Route: 048
     Dates: start: 202106, end: 20230306
  2. METHOTREXATE SODIUM [Concomitant]
     Active Substance: METHOTREXATE SODIUM
     Indication: Product used for unknown indication
     Dosage: START DATE TEXT: BEFORE 15 JUN 2021

REACTIONS (2)
  - Joint stiffness [Recovered/Resolved]
  - COVID-19 [Unknown]

NARRATIVE: CASE EVENT DATE: 20221007
